FAERS Safety Report 12556864 (Version 1)
Quarter: 2016Q3

REPORT INFORMATION
  Report Type: Spontaneous
  Country: AU (occurrence: AU)
  Receive Date: 20160714
  Receipt Date: 20160714
  Transmission Date: 20161109
  Serious: Yes (Other)
  Sender: FDA-Public Use
  Company Number: AU-CONCORDIA PHARMACEUTICALS INC.-GSH201607-003543

PATIENT
  Age: 50 Year
  Sex: Female

DRUGS (9)
  1. ETHAMBUTOL [Concomitant]
     Active Substance: ETHAMBUTOL HYDROCHLORIDE
  2. ORAPRED [Suspect]
     Active Substance: PREDNISOLONE SODIUM PHOSPHATE
     Route: 048
  3. PLAQUENIL [Suspect]
     Active Substance: HYDROXYCHLOROQUINE SULFATE
     Indication: NODULAR VASCULITIS
     Route: 048
  4. COLCHICINE. [Suspect]
     Active Substance: COLCHICINE
     Indication: NODULAR VASCULITIS
     Route: 048
  5. RIFAMPICIN [Concomitant]
     Active Substance: RIFAMPIN
  6. ORAPRED [Suspect]
     Active Substance: PREDNISOLONE SODIUM PHOSPHATE
     Indication: NODULAR VASCULITIS
     Route: 048
  7. ORAPRED [Suspect]
     Active Substance: PREDNISOLONE SODIUM PHOSPHATE
     Route: 048
  8. ISONIAZID. [Concomitant]
     Active Substance: ISONIAZID
  9. PYRAZINAMIDE. [Concomitant]
     Active Substance: PYRAZINAMIDE

REACTIONS (3)
  - Nodular vasculitis [Recovering/Resolving]
  - Product use issue [Unknown]
  - Rebound effect [Recovering/Resolving]
